FAERS Safety Report 5697722-1 (Version None)
Quarter: 2008Q2

REPORT INFORMATION
  Report Type: 
  Country: None (occurrence: None)
  Receive Date: 20080408
  Receipt Date: 20080403
  Transmission Date: 20081010
  Serious: Yes (Other)
  Sender: FDA-Public Use
  Company Number: B0514239A

PATIENT
  Age: 10 Year
  Sex: Female
  Weight: 32 kg

DRUGS (4)
  1. RELENZA [Suspect]
     Indication: INFLUENZA
     Dosage: 10MG PER DAY
     Route: 055
     Dates: start: 20080321
  2. ASVERIN [Concomitant]
     Route: 048
  3. MUCODYNE [Concomitant]
     Route: 048
  4. CALONAL [Concomitant]
     Route: 048

REACTIONS (1)
  - ABNORMAL BEHAVIOUR [None]
